FAERS Safety Report 17590766 (Version 1)
Quarter: 2020Q1

REPORT INFORMATION
  Report Type: Spontaneous
  Country: DK (occurrence: DK)
  Receive Date: 20200327
  Receipt Date: 20200327
  Transmission Date: 20200409
  Serious: Yes (Other)
  Sender: FDA-Public Use
  Company Number: DK-PFIZER INC-2020125334

PATIENT
  Sex: Female

DRUGS (1)
  1. PIPERACILLIN/TAZOBACTAM [Suspect]
     Active Substance: PIPERACILLIN SODIUM\TAZOBACTAM SODIUM
     Dosage: 4G PIPERACILLIN/100ML EVERY 8 HOURS (FIXED TIME)TIME: 30 MINUTES VELOCITY: 200ML/TIME
     Route: 042

REACTIONS (1)
  - Hallucination [Unknown]
